FAERS Safety Report 12254541 (Version 1)
Quarter: 2016Q2

REPORT INFORMATION
  Report Type: Spontaneous
  Country: DE (occurrence: DE)
  Receive Date: 20160411
  Receipt Date: 20160411
  Transmission Date: 20160815
  Serious: Yes (Hospitalization)
  Sender: FDA-Public Use
  Company Number: DE-TEVA-649192GER

PATIENT
  Sex: Female

DRUGS (3)
  1. VALSACOR [Suspect]
     Active Substance: VALSARTAN
     Dates: end: 2016
  2. BISOPROLOL RATIOPHARM [Suspect]
     Active Substance: BISOPROLOL
     Route: 065
     Dates: start: 2015, end: 2016
  3. L-THYROXIN RATIOPHARM 100 [Concomitant]
     Dates: start: 1989

REACTIONS (5)
  - Dyspnoea exertional [Recovered/Resolved]
  - Hyperhidrosis [Recovered/Resolved]
  - Arrhythmia [Recovered/Resolved]
  - Muscular weakness [Recovered/Resolved]
  - Pulmonary oedema [Recovered/Resolved]

NARRATIVE: CASE EVENT DATE: 2015
